FAERS Safety Report 4314228-2 (Version None)
Quarter: 2004Q1

REPORT INFORMATION
  Report Type: 
  Country: None (occurrence: None)
  Receive Date: 20040309
  Receipt Date: 20040309
  Transmission Date: 20041129
  Serious: Yes (Other)
  Sender: FDA-Public Use
  Company Number: None

PATIENT
  Age: 37 Year
  Sex: Female
  Weight: 99.7913 kg

DRUGS (1)
  1. FIORICET [Suspect]
     Indication: MIGRAINE
     Dosage: 1 TABLET EVERY SIX ORAL
     Route: 048
     Dates: start: 20040303, end: 20040307

REACTIONS (1)
  - TINNITUS [None]
